FAERS Safety Report 6498938-7 (Version None)
Quarter: 2009Q4

REPORT INFORMATION
  Report Type: 
  Country: None (occurrence: None)
  Receive Date: 20091215
  Receipt Date: 20091208
  Transmission Date: 20100525
  Serious: No
  Sender: FDA-Public Use
  Company Number: US-ROXANE LABORATORIES, INC.-2009-RO-01246RO

PATIENT
  Sex: Female

DRUGS (1)
  1. PREDNISONE [Suspect]

REACTIONS (1)
  - SKIN ATROPHY [None]
